FAERS Safety Report 14332495 (Version 1)
Quarter: 2017Q4

REPORT INFORMATION
  Report Type: Spontaneous
  Country: US (occurrence: US)
  Receive Date: 20171227
  Receipt Date: 20171227
  Transmission Date: 20180321
  Serious: Yes (Other)
  Sender: FDA-Public Use
  Company Number: None

PATIENT
  Age: 69 Year
  Sex: Female

DRUGS (1)
  1. CAPECITABINE 500MG [Suspect]
     Active Substance: CAPECITABINE
     Route: 048

REACTIONS (9)
  - Arthralgia [None]
  - Skin exfoliation [None]
  - Lip exfoliation [None]
  - Myalgia [None]
  - Diarrhoea [None]
  - Gait disturbance [None]
  - Wheelchair user [None]
  - Oral mucosal exfoliation [None]
  - Joint swelling [None]

NARRATIVE: CASE EVENT DATE: 20171227
